FAERS Safety Report 8463655-0 (Version None)
Quarter: 2012Q2

REPORT INFORMATION
  Report Type: 
  Country: None (occurrence: None)
  Receive Date: 20120625
  Receipt Date: 20120613
  Transmission Date: 20120825
  Serious: No
  Sender: FDA-Public Use
  Company Number: US-ASTRAZENECA-2012SE39820

PATIENT
  Age: 69 Year
  Sex: Male
  Weight: 95.3 kg

DRUGS (4)
  1. METFORMIN HCL [Concomitant]
     Indication: DIABETES MELLITUS
  2. SYMBICORT [Suspect]
     Indication: CHRONIC OBSTRUCTIVE PULMONARY DISEASE
     Dosage: TWO PUFFS , BID
     Route: 055
  3. GLYBURIDE [Concomitant]
     Indication: DIABETES MELLITUS
  4. SYMBICORT [Suspect]
     Indication: OBSTRUCTIVE AIRWAYS DISORDER
     Dosage: TWO PUFFS , BID
     Route: 055

REACTIONS (4)
  - DIABETES MELLITUS [None]
  - DEAFNESS [None]
  - COUGH [None]
  - OFF LABEL USE [None]
